FAERS Safety Report 9109545 (Version 1)
Quarter: 2013Q1

REPORT INFORMATION
  Report Type: Spontaneous
  Country: ES (occurrence: ES)
  Receive Date: 20130222
  Receipt Date: 20130222
  Transmission Date: 20140127
  Serious: Yes (Hospitalization, Other)
  Sender: FDA-Public Use
  Company Number: ES-PFIZER INC-2013066808

PATIENT
  Age: 72 Year
  Sex: Male

DRUGS (6)
  1. TRANGOREX [Suspect]
     Indication: ATRIAL FIBRILLATION
     Dosage: UNK
     Route: 048
     Dates: start: 200912
  2. SIMVASTATIN [Interacting]
     Indication: HYPERLIPIDAEMIA
     Dosage: UNK
     Route: 048
  3. SINTROM [Interacting]
     Indication: ATRIAL FIBRILLATION
     Dosage: UNK
     Route: 048
     Dates: start: 200912, end: 20120919
  4. ACETYLSALICYLIC ACID [Interacting]
     Indication: ISCHAEMIC CARDIOMYOPATHY
     Dosage: UNK
     Route: 048
     Dates: start: 200708, end: 20120919
  5. DIOVANE [Concomitant]
     Dosage: UNK
     Dates: start: 201011
  6. AMLODIPINE [Concomitant]
     Dosage: UNK
     Dates: start: 201202

REACTIONS (9)
  - Subdural haemorrhage [Recovered/Resolved]
  - Drug interaction [Unknown]
  - Cerebral atrophy [Unknown]
  - Infarction [Unknown]
  - Blood creatinine increased [Unknown]
  - C-reactive protein increased [Unknown]
  - Blood pressure increased [Unknown]
  - Haematocrit decreased [Unknown]
  - Haemoglobin decreased [Unknown]
